FAERS Safety Report 7326753-0 (Version None)
Quarter: 2011Q1

REPORT INFORMATION
  Report Type: 
  Country: None (occurrence: None)
  Receive Date: 20110302
  Receipt Date: 20090809
  Transmission Date: 20110831
  Serious: No
  Sender: FDA-Public Use
  Company Number: US-PFIZER INC-2009234610

PATIENT

DRUGS (2)
  1. VFEND [Suspect]
     Indication: ASPERGILLOSIS
     Dosage: UNK
     Route: 042
  2. VFEND [Suspect]
     Dosage: UNK
     Route: 048

REACTIONS (2)
  - DRUG LEVEL BELOW THERAPEUTIC [None]
  - DRUG LEVEL ABOVE THERAPEUTIC [None]
